FAERS Safety Report 8274539-5 (Version None)
Quarter: 2012Q2

REPORT INFORMATION
  Report Type: 
  Country: None (occurrence: None)
  Receive Date: 20120411
  Receipt Date: 20120402
  Transmission Date: 20120825
  Serious: Yes (Hospitalization, Other)
  Sender: FDA-Public Use
  Company Number: FR-ASTRAZENECA-2012SE03821

PATIENT
  Age: 80 Year
  Sex: Female

DRUGS (11)
  1. ZOLPIDEM [Concomitant]
     Route: 048
  2. NITROGLYCERIN [Concomitant]
     Route: 062
  3. FUROSEMIDE [Concomitant]
     Route: 048
  4. SOTALOL HCL [Concomitant]
     Route: 048
  5. ASPIRIN [Concomitant]
     Route: 048
  6. CANDESARTAN CILEXETIL AND HYDROCHLOROTHIAZIDE [Suspect]
     Indication: HYPERTENSION
     Dosage: 16/12.5 MG DAILY
     Route: 048
     Dates: start: 20050101, end: 20111223
  7. CLONAZEPAM [Concomitant]
     Route: 048
  8. MIRTAZAPINE [Concomitant]
     Route: 048
  9. ACETAMINOPHEN [Concomitant]
     Route: 048
  10. PANTOPRAZOLE [Concomitant]
     Route: 048
  11. TRANSIPEG [Concomitant]
     Route: 048

REACTIONS (7)
  - DYSPHAGIA [None]
  - GENERAL PHYSICAL HEALTH DETERIORATION [None]
  - GLOSSITIS [None]
  - BREATH SOUNDS [None]
  - CHEST X-RAY ABNORMAL [None]
  - RALES [None]
  - COUGH [None]
